FAERS Safety Report 6785082-4 (Version None)
Quarter: 2010Q2

REPORT INFORMATION
  Report Type: 
  Country: None (occurrence: None)
  Receive Date: 20100618
  Receipt Date: 20100604
  Transmission Date: 20101027
  Serious: Yes (Other)
  Sender: FDA-Public Use
  Company Number: 010988

PATIENT
  Sex: Male

DRUGS (3)
  1. VIMPAT [Suspect]
     Dosage: (200 MG ORAL), (150 MG BID ORAL)
     Route: 048
     Dates: start: 20100322, end: 20100414
  2. KEPPRA [Concomitant]
  3. TEGRETOL [Concomitant]

REACTIONS (1)
  - DELIRIUM [None]
